FAERS Safety Report 8008562-2 (Version None)
Quarter: 2011Q4

REPORT INFORMATION
  Report Type: 
  Country: None (occurrence: None)
  Receive Date: 20111227
  Receipt Date: 20111212
  Transmission Date: 20120403
  Serious: Yes (Hospitalization, Other)
  Sender: FDA-Public Use
  Company Number: FR-ROCHE-737823

PATIENT

DRUGS (1)
  1. MABTHERA [Suspect]
     Indication: MYOSITIS
     Route: 065

REACTIONS (7)
  - PYREXIA [None]
  - PYELONEPHRITIS [None]
  - PRURIGO [None]
  - HERPES VIRUS INFECTION [None]
  - HERPES ZOSTER OPHTHALMIC [None]
  - BREAST CANCER METASTATIC [None]
  - RASH [None]
